FAERS Safety Report 16644700 (Version 4)
Quarter: 2020Q2

REPORT INFORMATION
  Report Type: Spontaneous
  Country: US (occurrence: US)
  Receive Date: 20190729
  Receipt Date: 20200609
  Transmission Date: 20200713
  Serious: No
  Sender: FDA-Public Use
  Company Number: US-SA-2019SA200094

PATIENT

DRUGS (2)
  1. DUPIXENT [Suspect]
     Active Substance: DUPILUMAB
     Indication: PRODUCT USED FOR UNKNOWN INDICATION
     Dosage: 600 MG, 1X
     Route: 058
     Dates: start: 201903, end: 201903
  2. DUPIXENT [Suspect]
     Active Substance: DUPILUMAB
     Dosage: 300 MG, QOW
     Route: 058
     Dates: start: 2019

REACTIONS (12)
  - Lacrimation increased [Unknown]
  - Eye pruritus [Unknown]
  - Rhinorrhoea [Unknown]
  - Ocular hyperaemia [Unknown]
  - Erythema [Unknown]
  - Erythema of eyelid [Unknown]
  - Swelling of eyelid [Unknown]
  - Pruritus [Unknown]
  - Eye swelling [Unknown]
  - Blepharitis [Unknown]
  - Condition aggravated [Unknown]
  - Eye inflammation [Unknown]
